FAERS Safety Report 6355646-0 (Version None)
Quarter: 2009Q3

REPORT INFORMATION
  Report Type: 
  Country: None (occurrence: None)
  Receive Date: 20090910
  Receipt Date: 20090827
  Transmission Date: 20100115
  Serious: Yes (Disabling, Other)
  Sender: FDA-Public Use
  Company Number: ADR18592009

PATIENT
  Age: 65 Year
  Sex: Female

DRUGS (4)
  1. ALENDRONIC ACID (MFR: UNKNOWN) [Suspect]
     Indication: OSTEOPOROSIS
     Dosage: 70 MG, ORAL
     Route: 048
     Dates: start: 20021022, end: 20071101
  2. IBANDRONIC ACID [Concomitant]
  3. CALCIFEROL [Concomitant]
  4. CALCIUM [Concomitant]

REACTIONS (4)
  - FAILURE OF IMPLANT [None]
  - OSTEONECROSIS [None]
  - PAIN [None]
  - RESORPTION BONE INCREASED [None]
